FAERS Safety Report 4672994-0 (Version None)
Quarter: 2005Q2

REPORT INFORMATION
  Report Type: 
  Country: None (occurrence: None)
  Receive Date: 20050524
  Receipt Date: 20050509
  Transmission Date: 20051028
  Serious: Yes (Hospitalization)
  Sender: FDA-Public Use
  Company Number: GBWYE651509MAY05

PATIENT
  Sex: Female
  Weight: 81 kg

DRUGS (12)
  1. ENBREL [Suspect]
     Indication: RHEUMATOID ARTHRITIS
     Route: 058
     Dates: start: 20040714, end: 20040902
  2. RAMIPRIL [Concomitant]
     Dosage: UNKNOWN
  3. NABUMETONE [Concomitant]
     Dosage: UNKNOWN
  4. ASPIRIN [Concomitant]
     Dosage: UNKNOWN
  5. ATENOLOL [Concomitant]
     Dosage: UNKNOWN
  6. FOLIC ACID [Concomitant]
     Dosage: UNKNOWN
  7. LANSOPRAZOLE [Concomitant]
     Dosage: UNKNOWN
  8. PARACETAMOL [Concomitant]
     Dosage: UNKNOWN
  9. SIMVASTATIN [Concomitant]
     Dosage: UNKNOWN
  10. NEFOPAM HYDROCHLORIDE [Concomitant]
     Dosage: UNKNOWN
  11. ISOSORBIDE MONONITRATE [Concomitant]
     Dosage: UNKNOWN
  12. METHOTREXATE [Concomitant]

REACTIONS (2)
  - COUGH [None]
  - HYPERHIDROSIS [None]
